FAERS Safety Report 10264910 (Version 1)
Quarter: 2014Q2

REPORT INFORMATION
  Report Type: Spontaneous
  Country: US (occurrence: US)
  Receive Date: 20140627
  Receipt Date: 20140627
  Transmission Date: 20141212
  Serious: Yes (Hospitalization)
  Sender: FDA-Public Use
  Company Number: US-BAYER-2014-095184

PATIENT
  Age: 17 Year
  Sex: Female
  Weight: 67 kg

DRUGS (3)
  1. YASMIN [Suspect]
     Indication: OVARIAN CYST
  2. YAZ [Suspect]
  3. TYLENOL ES [Concomitant]

REACTIONS (1)
  - Pulmonary embolism [Recovered/Resolved]
